FAERS Safety Report 21875265 (Version 2)
Quarter: 2023Q1

REPORT INFORMATION
  Report Type: Spontaneous
  Country: US (occurrence: US)
  Receive Date: 20230117
  Receipt Date: 20230223
  Transmission Date: 20230418
  Serious: No
  Sender: FDA-Public Use
  Company Number: US-BoehringerIngelheim-2023-BI-213272

PATIENT
  Age: 72 Year
  Sex: Male

DRUGS (1)
  1. STIOLTO RESPIMAT [Suspect]
     Active Substance: OLODATEROL HYDROCHLORIDE\TIOTROPIUM BROMIDE MONOHYDRATE
     Indication: Chronic obstructive pulmonary disease
     Dosage: 2 PUFFS DAILY?FOA: INHALATION SPRAY
     Dates: start: 202201

REACTIONS (3)
  - Dyspnoea exertional [Recovering/Resolving]
  - Chest discomfort [Recovering/Resolving]
  - Device malfunction [Recovering/Resolving]

NARRATIVE: CASE EVENT DATE: 20221227
